FAERS Safety Report 8616096-7 (Version None)
Quarter: 2012Q3

REPORT INFORMATION
  Report Type: 
  Country: None (occurrence: None)
  Receive Date: 20120823
  Receipt Date: 20120820
  Transmission Date: 20120928
  Serious: Yes (Life-Threatening, Hospitalization)
  Sender: FDA-Public Use
  Company Number: FR-ROCHE-1104706

PATIENT
  Age: 52 Year
  Sex: Male

DRUGS (2)
  1. ZELBORAF [Suspect]
     Dosage: DOSE REDUCED
     Dates: end: 20120519
  2. ZELBORAF [Suspect]
     Indication: PRODUCT USED FOR UNKNOWN INDICATION
     Route: 048
     Dates: start: 20120430

REACTIONS (4)
  - HYPERKERATOSIS [None]
  - RASH PAPULAR [None]
  - EOSINOPHILIA [None]
  - RENAL FAILURE [None]
